FAERS Safety Report 4613809-6 (Version None)
Quarter: 2005Q1

REPORT INFORMATION
  Report Type: 
  Country: None (occurrence: None)
  Receive Date: 20050315
  Receipt Date: 20040519
  Transmission Date: 20050727
  Serious: Yes (Hospitalization)
  Sender: FDA-Public Use
  Company Number: 8265

PATIENT
  Age: 32 Year
  Sex: Female

DRUGS (6)
  1. LEUCOVORIN [Suspect]
     Indication: DEFICIENCY ANAEMIA
     Dosage: PO
     Route: 048
     Dates: start: 20031010, end: 20031203
  2. PYRIMETHAMINE [Suspect]
     Indication: TOXOPLASMOSIS
     Dosage: 50 M G PO
     Route: 048
     Dates: start: 20031008, end: 20031203
  3. SULFADIAZINE [Suspect]
     Indication: TOXOPLASMOSIS
     Dosage: 4 G PO
     Route: 048
     Dates: start: 20031008, end: 20031203
  4. ZIDOVUDINE [Concomitant]
  5. NEVIRAPINE [Concomitant]
  6. LAMIVUDINE [Concomitant]

REACTIONS (1)
  - GRANULOCYTOPENIA [None]
